FAERS Safety Report 20807627 (Version 2)
Quarter: 2022Q3

REPORT INFORMATION
  Report Type: Spontaneous
  Country: CA (occurrence: CA)
  Receive Date: 20220510
  Receipt Date: 20220830
  Transmission Date: 20221027
  Serious: Yes (Other)
  Sender: FDA-Public Use
  Company Number: CA-SAMSUNG BIOEPIS-SB-2022-10803

PATIENT
  Age: 13 Year
  Sex: Female
  Weight: 40 kg

DRUGS (5)
  1. INFLIXIMAB [Suspect]
     Active Substance: INFLIXIMAB
     Indication: Crohn^s disease
     Route: 042
  2. BUDESONIDE [Concomitant]
     Active Substance: BUDESONIDE
     Indication: Product used for unknown indication
     Dosage: UNKNOWN
     Route: 065
  3. IRON [Concomitant]
     Active Substance: IRON
     Indication: Product used for unknown indication
     Dosage: UNKNOWN
     Route: 065
  4. VITAMIN D [Concomitant]
     Active Substance: VITAMIN D NOS
     Indication: Product used for unknown indication
     Dosage: UNKNOWN
     Route: 065
  5. PREDNISONE [Concomitant]
     Active Substance: PREDNISONE
     Indication: Product used for unknown indication
     Route: 065

REACTIONS (14)
  - Arthralgia [Unknown]
  - Condition aggravated [Unknown]
  - Haemorrhage [Unknown]
  - Weight decreased [Unknown]
  - Dyspnoea [Unknown]
  - Erythema [Unknown]
  - Nausea [Unknown]
  - Weight increased [Unknown]
  - Drug specific antibody present [Unknown]
  - Drug level below therapeutic [Unknown]
  - Drug ineffective [Unknown]
  - Loss of therapeutic response [Unknown]
  - Intentional product use issue [Unknown]
  - Off label use [Unknown]
